FAERS Safety Report 8390899-9 (Version None)
Quarter: 2012Q2

REPORT INFORMATION
  Report Type: 
  Country: None (occurrence: None)
  Receive Date: 20120529
  Receipt Date: 20120518
  Transmission Date: 20120825
  Serious: Yes (Other)
  Sender: FDA-Public Use
  Company Number: JP-VERTEX PHARMACEUTICALS INC.-AE-2012-007722

PATIENT
  Age: 57 Year
  Sex: Female

DRUGS (10)
  1. SELBEX [Concomitant]
     Route: 048
     Dates: start: 20120209
  2. RIBAVIRIN [Concomitant]
     Indication: HEPATITIS C
     Route: 048
     Dates: start: 20120209, end: 20120229
  3. RIBAVIRIN [Concomitant]
     Route: 048
     Dates: start: 20120301, end: 20120314
  4. RIBAVIRIN [Concomitant]
     Route: 048
     Dates: start: 20120405, end: 20120426
  5. URSO 250 [Concomitant]
     Route: 048
     Dates: end: 20120229
  6. TELAVIC (TELAPREVIR) [Suspect]
     Indication: HEPATITIS C
     Route: 048
     Dates: start: 20120209, end: 20120411
  7. TELAVIC (TELAPREVIR) [Suspect]
     Route: 048
     Dates: start: 20120412, end: 20120425
  8. TELAVIC (TELAPREVIR) [Suspect]
     Route: 048
     Dates: start: 20120426, end: 20120430
  9. PEGINTERFERON ALFA-2B [Concomitant]
     Indication: HEPATITIS C
     Route: 051
     Dates: start: 20120209
  10. RIBAVIRIN [Concomitant]
     Route: 048
     Dates: start: 20120315, end: 20120404

REACTIONS (2)
  - HAEMOGLOBIN DECREASED [None]
  - SKIN EXFOLIATION [None]
